FAERS Safety Report 23502876 (Version 1)
Quarter: 2024Q1

REPORT INFORMATION
  Report Type: Spontaneous
  Country: US (occurrence: US)
  Receive Date: 20240208
  Receipt Date: 20240208
  Transmission Date: 20240410
  Serious: No
  Sender: FDA-Public Use
  Company Number: US-INTRA-CELLULAR THERAPIES, INC.-2023ICT01235

PATIENT
  Age: 36 Year
  Sex: Male

DRUGS (1)
  1. CAPLYTA [Suspect]
     Active Substance: LUMATEPERONE
     Indication: Bipolar disorder
     Dosage: UNK

REACTIONS (6)
  - Skin warm [Unknown]
  - Peripheral coldness [Unknown]
  - Feeling drunk [Unknown]
  - Headache [Unknown]
  - Gait disturbance [Unknown]
  - Restlessness [Unknown]
